FAERS Safety Report 8365561-9 (Version None)
Quarter: 2012Q2

REPORT INFORMATION
  Report Type: 
  Country: None (occurrence: None)
  Receive Date: 20120516
  Receipt Date: 20120515
  Transmission Date: 20120825
  Serious: Yes (Life-Threatening)
  Sender: FDA-Public Use
  Company Number: RU-BAYER-2012-047245

PATIENT
  Age: 63 Year
  Sex: Male

DRUGS (1)
  1. ULTRAVIST 150 [Suspect]
     Dosage: UNK
     Route: 042

REACTIONS (4)
  - CHILLS [None]
  - ANXIETY [None]
  - HYPERAEMIA [None]
  - FEAR [None]
